FAERS Safety Report 23634605 (Version 1)
Quarter: 2024Q1

REPORT INFORMATION
  Report Type: Report from Study
  Country: US (occurrence: US)
  Receive Date: 20240315
  Receipt Date: 20240315
  Transmission Date: 20240410
  Serious: Yes (Death)
  Sender: FDA-Public Use
  Company Number: US-ABBVIE-5680164

PATIENT
  Sex: Female

DRUGS (1)
  1. VENCLEXTA [Suspect]
     Active Substance: VENETOCLAX
     Indication: Myeloid leukaemia
     Dosage: FORM STRENGTH: 100 MG, WITH FOOD AND A FULL GLASS OF WATER FOR 14 DAYS ON THEN 14 DAYS OFF AS DIR...
     Route: 048

REACTIONS (1)
  - Death [Fatal]
